FAERS Safety Report 7368968-1 (Version None)
Quarter: 2011Q1

REPORT INFORMATION
  Report Type: 
  Country: None (occurrence: None)
  Receive Date: 20110323
  Receipt Date: 20110224
  Transmission Date: 20110831
  Serious: No
  Sender: FDA-Public Use
  Company Number: US-B.I. PHARMACEUTICALS,INC./RIDGEFIELD-2011-BP-06709BP

PATIENT
  Age: 79 Year
  Sex: Male

DRUGS (5)
  1. COMBIVENT [Concomitant]
     Indication: ASTHMA
  2. CHLOROTHIAZIDE [Concomitant]
     Indication: HYPERTENSION
  3. FLOVENT [Concomitant]
     Indication: ASTHMA
  4. PRADAXA [Suspect]
     Indication: ATRIAL FIBRILLATION
     Dosage: 300 MG
     Route: 048
     Dates: start: 20110101, end: 20110201
  5. NEBULIZER [Concomitant]
     Indication: ASTHMA

REACTIONS (4)
  - RASH GENERALISED [None]
  - PRURITUS GENERALISED [None]
  - NAUSEA [None]
  - CHEST DISCOMFORT [None]
